FAERS Safety Report 14057534 (Version 1)
Quarter: 2017Q4

REPORT INFORMATION
  Report Type: Spontaneous
  Country: US (occurrence: US)
  Receive Date: 20171006
  Receipt Date: 20171006
  Transmission Date: 20180321
  Serious: Yes (Other)
  Sender: FDA-Public Use
  Company Number: US-BEH-2017084045

PATIENT
  Age: 54 Year
  Sex: Female
  Weight: 77.98 kg

DRUGS (51)
  1. GABAPENTIN. [Concomitant]
     Active Substance: GABAPENTIN
  2. DIPHENHYDRAMINE. [Concomitant]
     Active Substance: DIPHENHYDRAMINE
  3. EPINEPHRINE. [Concomitant]
     Active Substance: EPINEPHRINE
  4. ANTIVERT                           /00007101/ [Concomitant]
     Active Substance: MECLIZINE MONOHYDROCHLORIDE\NIACIN
  5. SYMBICORT [Concomitant]
     Active Substance: BUDESONIDE\FORMOTEROL FUMARATE DIHYDRATE
  6. VOLTAREN [Concomitant]
     Active Substance: DICLOFENAC SODIUM
  7. PREDNISONE. [Concomitant]
     Active Substance: PREDNISONE
  8. SYNALAR [Concomitant]
     Active Substance: FLUOCINOLONE ACETONIDE
     Dosage: 0.025 %, UNK
     Route: 061
  9. CLOBETASOL PROPIONATE. [Concomitant]
     Active Substance: CLOBETASOL PROPIONATE
  10. TRAMADOL. [Concomitant]
     Active Substance: TRAMADOL
  11. SKELAXIN [Concomitant]
     Active Substance: METAXALONE
  12. LIPITOR [Concomitant]
     Active Substance: ATORVASTATIN CALCIUM
  13. LMX                                /00033401/ [Concomitant]
  14. SPIRONOLACTONE. [Concomitant]
     Active Substance: SPIRONOLACTONE
  15. FOLIC ACID. [Concomitant]
     Active Substance: FOLIC ACID
  16. ONDANSETRON [Concomitant]
     Active Substance: ONDANSETRON
  17. SERTRALINE [Concomitant]
     Active Substance: SERTRALINE HYDROCHLORIDE
  18. SINGULAIR [Concomitant]
     Active Substance: MONTELUKAST SODIUM
  19. PLAQUENIL                          /00072602/ [Concomitant]
     Active Substance: HYDROXYCHLOROQUINE DIPHOSPHATE
  20. ZYRTEC [Concomitant]
     Active Substance: CETIRIZINE HYDROCHLORIDE
  21. ASPIRIN. [Concomitant]
     Active Substance: ASPIRIN
  22. HIZENTRA [Suspect]
     Active Substance: HUMAN IMMUNOGLOBULIN G
     Dosage: UNK
     Route: 058
  23. BUPROPION                          /00700502/ [Concomitant]
     Active Substance: BUPROPION HYDROCHLORIDE
  24. COLCHICINE. [Concomitant]
     Active Substance: COLCHICINE
  25. MOMETASONE [Concomitant]
     Active Substance: MOMETASONE
  26. CALCIUM CITRATE [Concomitant]
     Active Substance: CALCIUM CITRATE
  27. ISOSORBIDE MONONITRATE. [Concomitant]
     Active Substance: ISOSORBIDE MONONITRATE
  28. PROBIOTIC                          /06395501/ [Concomitant]
     Active Substance: BIFIDOBACTERIUM ANIMALIS LACTIS
  29. HIZENTRA [Suspect]
     Active Substance: HUMAN IMMUNOGLOBULIN G
     Indication: IMMUNODEFICIENCY COMMON VARIABLE
     Dosage: 15 G, UNK
     Route: 058
     Dates: start: 20151216
  30. HIZENTRA [Suspect]
     Active Substance: HUMAN IMMUNOGLOBULIN G
     Dosage: UNK
     Route: 058
  31. HIZENTRA [Suspect]
     Active Substance: HUMAN IMMUNOGLOBULIN G
     Dosage: UNK
     Route: 058
  32. CLOTRIMAZOLE AND BETAMETHASONE [Concomitant]
     Active Substance: BETAMETHASONE\CLOTRIMAZOLE
  33. GOLD BOND ORIGINAL STRENGTH POWDER [Concomitant]
     Active Substance: MENTHOL\ZINC OXIDE
     Route: 061
  34. CARVEDILOL. [Concomitant]
     Active Substance: CARVEDILOL
  35. LIDOCAINE. [Concomitant]
     Active Substance: LIDOCAINE
  36. NYSTATIN. [Concomitant]
     Active Substance: NYSTATIN
  37. METHOTREXATE. [Concomitant]
     Active Substance: METHOTREXATE
  38. VITAMIN D3 [Concomitant]
     Active Substance: CHOLECALCIFEROL
  39. VALSARTAN HCT [Concomitant]
     Active Substance: HYDROCHLOROTHIAZIDE\VALSARTAN
  40. THERATEARS [Concomitant]
     Active Substance: CARBOXYMETHYLCELLULOSE SODIUM
  41. ACETAMINOPHEN. [Concomitant]
     Active Substance: ACETAMINOPHEN
  42. NITROSTAT [Concomitant]
     Active Substance: NITROGLYCERIN
  43. FERROUS SULFATE. [Concomitant]
     Active Substance: FERROUS SULFATE
  44. TOPAMAX [Concomitant]
     Active Substance: TOPIRAMATE
  45. CHOLESTYRAMINE. [Concomitant]
     Active Substance: CHOLESTYRAMINE
  46. DOCUSATE SODIUM. [Concomitant]
     Active Substance: DOCUSATE SODIUM
  47. MAGNESIUM [Concomitant]
     Active Substance: MAGNESIUM
  48. PROTONIX [Concomitant]
     Active Substance: PANTOPRAZOLE SODIUM
  49. IMODIUM A-D [Concomitant]
     Active Substance: LOPERAMIDE HYDROCHLORIDE
  50. PROAIR HFA [Concomitant]
     Active Substance: ALBUTEROL SULFATE
  51. SKELAXIN [Concomitant]
     Active Substance: METAXALONE

REACTIONS (2)
  - Ventricular extrasystoles [Unknown]
  - Chest discomfort [Unknown]

NARRATIVE: CASE EVENT DATE: 20170923
